FAERS Safety Report 19053697 (Version 1)
Quarter: 2021Q1

REPORT INFORMATION
  Report Type: Spontaneous
  Country: FR (occurrence: FR)
  Receive Date: 20210324
  Receipt Date: 20210324
  Transmission Date: 20210420
  Serious: Yes (Hospitalization)
  Sender: FDA-Public Use
  Company Number: FR-UCBSA-2021012227

PATIENT
  Age: 84 Year
  Sex: Female

DRUGS (3)
  1. DEXAMBUTOL [Suspect]
     Active Substance: ETHAMBUTOL HYDROCHLORIDE
     Indication: LATENT TUBERCULOSIS
     Dosage: 750 MG DAILY
     Route: 048
     Dates: start: 2018, end: 20210123
  2. KEPPRA [Suspect]
     Active Substance: LEVETIRACETAM
     Indication: EPILEPSY
     Dosage: 750 MG DAILY
     Route: 048
     Dates: start: 2015
  3. RIFADINE [RIFAMPICIN SODIUM] [Suspect]
     Active Substance: RIFAMPIN SODIUM
     Indication: LATENT TUBERCULOSIS
     Dosage: 600 MG DAILY
     Route: 048
     Dates: start: 2018, end: 20210123

REACTIONS (4)
  - Confusional state [Recovered/Resolved]
  - Dysarthria [Recovered/Resolved]
  - Drug level below therapeutic [Recovered/Resolved]
  - Aphasia [Recovered/Resolved]

NARRATIVE: CASE EVENT DATE: 202001
